FAERS Safety Report 19500129 (Version 2)
Quarter: 2021Q3

REPORT INFORMATION
  Report Type: Report from Study
  Country: None (occurrence: JP)
  Receive Date: 20210706
  Receipt Date: 20210809
  Transmission Date: 20211014
  Serious: Yes (Other)
  Sender: FDA-Public Use
  Company Number: JP-ABBVIE-21P-087-3978682-00

PATIENT
  Age: 78 Year
  Sex: Male
  Weight: 60 kg

DRUGS (8)
  1. MUCOSOLVAN L [Concomitant]
     Active Substance: AMBROXOL HYDROCHLORIDE
     Indication: BULBOSPINAL MUSCULAR ATROPHY CONGENITAL
     Dosage: 45 MILLIGRAM
     Route: 065
     Dates: end: 20191029
  2. LYRICA [Concomitant]
     Active Substance: PREGABALIN
     Indication: BULBOSPINAL MUSCULAR ATROPHY CONGENITAL
     Dosage: 300 MILLIGRAM
     Route: 065
  3. GOOFICE [Concomitant]
     Active Substance: ELOBIXIBAT
     Indication: PRODUCT USED FOR UNKNOWN INDICATION
     Dosage: 10 MILLIGRAM
     Route: 065
     Dates: start: 20190807, end: 20191029
  4. CARBOCISTEINE [Concomitant]
     Active Substance: CARBOCYSTEINE
     Indication: BULBOSPINAL MUSCULAR ATROPHY CONGENITAL
     Dosage: 1000 MILLIGRAM
     Route: 065
     Dates: start: 20191030
  5. CRESTOR OD [Concomitant]
     Active Substance: ROSUVASTATIN CALCIUM
     Indication: PRODUCT USED FOR UNKNOWN INDICATION
     Dosage: 2.5 MILLIGRAM
     Route: 065
  6. PRAMIEL [Concomitant]
     Indication: PRODUCT USED FOR UNKNOWN INDICATION
     Dosage: 5 MILLIGRAM
     Route: 065
     Dates: start: 20191029
  7. LEUPLIN [Suspect]
     Active Substance: LEUPROLIDE ACETATE
     Indication: BULBOSPINAL MUSCULAR ATROPHY CONGENITAL
     Dosage: 11.25 MILLIGRAM, Q3MONTHS
     Route: 058
     Dates: start: 20190806, end: 20200205
  8. GOOFICE [Concomitant]
     Active Substance: ELOBIXIBAT
     Dosage: 15 MILLIGRAM
     Route: 065
     Dates: start: 20191030

REACTIONS (3)
  - Urinary incontinence [Recovered/Resolved]
  - Urinary retention [Recovered/Resolved]
  - Pollakiuria [Recovered/Resolved]

NARRATIVE: CASE EVENT DATE: 20200210
